FAERS Safety Report 4913718-9 (Version None)
Quarter: 2006Q1

REPORT INFORMATION
  Report Type: 
  Country: None (occurrence: None)
  Receive Date: 20060210
  Receipt Date: 20060201
  Transmission Date: 20060701
  Serious: Yes (Hospitalization, Other)
  Sender: FDA-Public Use
  Company Number: HQWYE626602FEB06

PATIENT
  Age: 38 Year
  Sex: Male
  Weight: 103.33 kg

DRUGS (7)
  1. PROGRAF [Suspect]
     Indication: PROPHYLAXIS AGAINST TRANSPLANT REJECTION
     Dosage: 2 MG 2X PER 1 DAY, ORAL
     Route: 048
     Dates: start: 20050331
  2. CELLCEPT [Suspect]
     Indication: PROPHYLAXIS AGAINST TRANSPLANT REJECTION
     Dosage: 500 MG 4X PER 1 DAY, ORAL
     Route: 048
     Dates: start: 20050331
  3. BACTRIM [Concomitant]
  4. COUMADIN [Concomitant]
  5. NEURONTIN [Concomitant]
  6. PREDNISONE TAB [Concomitant]
  7. ZENAPAX [Concomitant]

REACTIONS (4)
  - BLOOD ALKALINE PHOSPHATASE INCREASED [None]
  - BLOOD CREATININE INCREASED [None]
  - CHOLELITHIASIS [None]
  - PANCREATITIS ACUTE [None]
